FAERS Safety Report 6226180-3 (Version None)
Quarter: 2009Q2

REPORT INFORMATION
  Report Type: 
  Country: None (occurrence: None)
  Receive Date: 20090612
  Receipt Date: 20090511
  Transmission Date: 20091009
  Serious: No
  Sender: FDA-Public Use
  Company Number: US-ABBOTT-09P-163-0572645-00

PATIENT
  Sex: Female
  Weight: 81.72 kg

DRUGS (3)
  1. HUMIRA [Suspect]
     Indication: PSORIASIS
     Route: 058
     Dates: start: 20090227, end: 20090227
  2. HUMIRA [Suspect]
     Dates: start: 20090306, end: 20090306
  3. SYNTHROID [Concomitant]
     Indication: HYPOTHYROIDISM

REACTIONS (8)
  - COUGH [None]
  - FUNGAL INFECTION [None]
  - LETHARGY [None]
  - LYMPHADENOPATHY [None]
  - OROPHARYNGEAL PAIN [None]
  - PSORIASIS [None]
  - SNEEZING [None]
  - URINARY TRACT INFECTION [None]
